FAERS Safety Report 6096969-2 (Version None)
Quarter: 2009Q1

REPORT INFORMATION
  Report Type: 
  Country: None (occurrence: None)
  Receive Date: 20090227
  Receipt Date: 20090216
  Transmission Date: 20090719
  Serious: Yes (Other)
  Sender: FDA-Public Use
  Company Number: FR-PFIZER INC-2009173170

PATIENT

DRUGS (9)
  1. ZYVOXID [Suspect]
     Indication: SEPSIS
     Dosage: 600 MG, 2X/DAY
     Route: 048
     Dates: start: 20081115, end: 20081121
  2. COTAREG [Suspect]
     Dosage: 160/12.5 MG
     Route: 048
     Dates: end: 20081120
  3. TAZOCILLINE [Suspect]
     Indication: SEPSIS
     Dosage: 12 G, UNK
     Route: 042
     Dates: start: 20081115, end: 20081126
  4. CIFLOX [Suspect]
     Indication: SEPSIS
     Dosage: 500 MG, 1X/DAY
     Route: 048
     Dates: start: 20081115, end: 20081126
  5. DRUG, UNSPECIFIED [Concomitant]
     Dosage: UNK
     Dates: start: 19900101
  6. INIPOMP [Concomitant]
  7. EUPRESSYL [Concomitant]
  8. CALCIPARINE [Concomitant]
     Dates: start: 20081115
  9. DIFFU K [Concomitant]
     Dates: start: 20081115

REACTIONS (1)
  - PANCREATITIS [None]
